FAERS Safety Report 5581441-6 (Version None)
Quarter: 2007Q4

REPORT INFORMATION
  Report Type: 
  Country: None (occurrence: None)
  Receive Date: 20071231
  Receipt Date: 20071231
  Transmission Date: 20080405
  Serious: Yes (Life-Threatening)
  Sender: FDA-Public Use
  Company Number: None

PATIENT
  Age: 50 Year
  Sex: Female
  Weight: 49.8957 kg

DRUGS (1)
  1. CHANTIX [Suspect]
     Indication: SMOKING CESSATION THERAPY
     Dosage: 1 MG  2 X DAILY  PO;  .5 MG  2 X DAILY  PO
     Route: 048
     Dates: start: 20070920, end: 20071230

REACTIONS (4)
  - NIGHTMARE [None]
  - PALPITATIONS [None]
  - SUICIDAL IDEATION [None]
  - TREMOR [None]
